FAERS Safety Report 10417183 (Version 4)
Quarter: 2014Q4

REPORT INFORMATION
  Report Type: Spontaneous
  Country: US (occurrence: US)
  Receive Date: 20140828
  Receipt Date: 20141027
  Transmission Date: 20150528
  Serious: Yes (Death, Hospitalization, Other)
  Sender: FDA-Public Use
  Company Number: US-GILEAD-2014-0113126

PATIENT
  Age: 63 Year
  Sex: Female
  Weight: 102.4 kg

DRUGS (19)
  1. VITAMINS NOS [Concomitant]
     Active Substance: VITAMINS
  2. PROCATEROL HYDROCHLORIDE [Concomitant]
     Active Substance: PROCATEROL HYDROCHLORIDE
  3. METFORMIN [Concomitant]
     Active Substance: METFORMIN HYDROCHLORIDE
  4. EFFEXOR [Concomitant]
     Active Substance: VENLAFAXINE HYDROCHLORIDE
  5. ATENOLOL. [Concomitant]
     Active Substance: ATENOLOL
  6. INSULIN [Concomitant]
     Active Substance: INSULIN NOS
  7. LISINOPRIL HCTZ [Concomitant]
     Active Substance: HYDROCHLOROTHIAZIDE\LISINOPRIL
  8. RIBAVIRIN. [Suspect]
     Active Substance: RIBAVIRIN
     Indication: HEPATITIS C
     Dosage: 1200 MG, QD
     Route: 048
     Dates: start: 20140626, end: 20140819
  9. FUROSEMIDE. [Concomitant]
     Active Substance: FUROSEMIDE
     Indication: OEDEMA
  10. AMARYL [Concomitant]
     Active Substance: GLIMEPIRIDE
  11. MAGNESIUM [Concomitant]
     Active Substance: MAGNESIUM
  12. OMEPRAZOLE. [Concomitant]
     Active Substance: OMEPRAZOLE
  13. SOVALDI [Suspect]
     Active Substance: SOFOSBUVIR
     Indication: HEPATITIS C
     Dosage: 400 MG, QD
     Route: 048
     Dates: start: 20140626, end: 20140819
  14. KEPPRA [Concomitant]
     Active Substance: LEVETIRACETAM
     Indication: HYPOTHYROIDISM
  15. LEVOTHYROXINE [Concomitant]
     Active Substance: LEVOTHYROXINE
     Indication: HYPOTHYROIDISM
  16. OSCAL                              /00514701/ [Concomitant]
  17. RIFAXIMIN [Concomitant]
     Active Substance: RIFAXIMIN
     Indication: HYPOTHYROIDISM
  18. SIMEPREVIR [Suspect]
     Active Substance: SIMEPREVIR
     Indication: HEPATITIS C
     Dosage: 150 MG, QD
     Route: 048
     Dates: start: 20140626, end: 20140819
  19. OFLOXACIN. [Concomitant]
     Active Substance: OFLOXACIN

REACTIONS (13)
  - Muscular weakness [Unknown]
  - Anaemia [Unknown]
  - Blood bilirubin increased [Unknown]
  - Anxiety [Unknown]
  - Hepatic failure [Fatal]
  - Pancytopenia [Unknown]
  - Renal failure [Fatal]
  - Erythema [Unknown]
  - Decreased appetite [Unknown]
  - Chills [Unknown]
  - Off label use [Not Recovered/Not Resolved]
  - Amnesia [Unknown]
  - Disturbance in attention [Unknown]

NARRATIVE: CASE EVENT DATE: 201408
